FAERS Safety Report 5254059-2 (Version None)
Quarter: 2007Q1

REPORT INFORMATION
  Report Type: 
  Country: None (occurrence: None)
  Receive Date: 20070302
  Receipt Date: 20070219
  Transmission Date: 20070707
  Serious: Yes (Death, Life-Threatening)
  Sender: FDA-Public Use
  Company Number: JP-JNJFOC-20061106690

PATIENT
  Sex: Female

DRUGS (11)
  1. LEUSTATIN [Suspect]
     Indication: CHRONIC LYMPHOCYTIC LEUKAEMIA
     Route: 042
  2. ENDOXAN [Concomitant]
     Indication: CHRONIC LYMPHOCYTIC LEUKAEMIA
  3. PREDONINE [Concomitant]
     Indication: CHRONIC LYMPHOCYTIC LEUKAEMIA
  4. KYTRIL [Concomitant]
  5. ITRACONAZOLE [Concomitant]
     Indication: PROPHYLAXIS
  6. BACTRIM [Concomitant]
     Indication: PROPHYLAXIS
  7. ENTERONON-R [Concomitant]
     Indication: PROPHYLAXIS
  8. GASPORT [Concomitant]
  9. MAGNESIUM OXIDE [Concomitant]
  10. FLUCONARL [Concomitant]
     Indication: PROPHYLAXIS
  11. TAKEPRON [Concomitant]

REACTIONS (6)
  - DEPRESSED LEVEL OF CONSCIOUSNESS [None]
  - GRANULOCYTOPENIA [None]
  - ILEUS [None]
  - LEUKOPENIA [None]
  - SEPSIS [None]
  - THROMBOCYTOPENIA [None]
